FAERS Safety Report 10144658 (Version 1)
Quarter: 2014Q2

REPORT INFORMATION
  Report Type: Spontaneous
  Country: US (occurrence: US)
  Receive Date: 20140430
  Receipt Date: 20140430
  Transmission Date: 20141212
  Serious: No
  Sender: FDA-Public Use
  Company Number: US-SA-2013SA113915

PATIENT
  Age: 74 Year
  Sex: Male

DRUGS (1)
  1. ENOXAPARIN SODIUM - WINTHROP [Suspect]
     Route: 051
     Dates: start: 20131031

REACTIONS (3)
  - Injection site erythema [Unknown]
  - Injection site bruising [Unknown]
  - Injection site pain [Unknown]
